FAERS Safety Report 10425057 (Version 1)
Quarter: 2014Q3

REPORT INFORMATION
  Report Type: Spontaneous
  Country: US (occurrence: US)
  Receive Date: 20140902
  Receipt Date: 20140902
  Transmission Date: 20150326
  Serious: Yes (Hospitalization)
  Sender: FDA-Public Use
  Company Number: US-GLAXOSMITHKLINE-A1086552A

PATIENT
  Age: 60 Year
  Sex: Male

DRUGS (19)
  1. QUETIAPINE [Concomitant]
     Active Substance: QUETIAPINE
  2. CINNAMON. [Concomitant]
     Active Substance: CINNAMON
  3. LOVAZA [Concomitant]
     Active Substance: OMEGA-3-ACID ETHYL ESTERS
  4. FLUVOXAMINE [Concomitant]
     Active Substance: FLUVOXAMINE
  5. ASPIRIN. [Concomitant]
     Active Substance: ASPIRIN
  6. LANTUS [Concomitant]
     Active Substance: INSULIN GLARGINE
  7. METOPROLOL SUCCINATE. [Concomitant]
     Active Substance: METOPROLOL SUCCINATE
  8. FENOFIBRATE. [Concomitant]
     Active Substance: FENOFIBRATE
  9. PRAMIPEXOLE [Concomitant]
     Active Substance: PRAMIPEXOLE
  10. VITAMIN C [Concomitant]
     Active Substance: ASCORBIC ACID
  11. HUMULIN R [Concomitant]
     Active Substance: INSULIN HUMAN
  12. LOSARTAN [Concomitant]
     Active Substance: LOSARTAN
  13. ALEVE [Concomitant]
     Active Substance: NAPROXEN SODIUM
  14. AVODART [Suspect]
     Active Substance: DUTASTERIDE
     Indication: BENIGN PROSTATIC HYPERPLASIA
     Dosage: 1CAP PER DAY
     Route: 048
  15. OMEGA 3 [Concomitant]
     Active Substance: OMEGA-3 FATTY ACIDS
  16. SIMVASTATIN. [Concomitant]
     Active Substance: SIMVASTATIN
  17. TAMSULOSIN [Concomitant]
     Active Substance: TAMSULOSIN
  18. STRESSTABS [Concomitant]
  19. HUMALOG [Concomitant]
     Active Substance: INSULIN LISPRO

REACTIONS (8)
  - Cardiac assistance device user [Unknown]
  - Blood cholesterol abnormal [Unknown]
  - Coronary artery bypass [Unknown]
  - Arthropathy [Unknown]
  - Intervertebral disc protrusion [Unknown]
  - Memory impairment [Unknown]
  - Disturbance in attention [Unknown]
  - Diabetes mellitus [Unknown]

NARRATIVE: CASE EVENT DATE: 2009
